FAERS Safety Report 11694921 (Version 2)
Quarter: 2015Q4

REPORT INFORMATION
  Report Type: Spontaneous
  Country: US (occurrence: US)
  Receive Date: 20151103
  Receipt Date: 20151106
  Transmission Date: 20160304
  Serious: No
  Sender: FDA-Public Use
  Company Number: US-TEVA-606077ACC

PATIENT
  Sex: Female

DRUGS (1)
  1. PARAGARD T 380A [Suspect]
     Active Substance: COPPER
     Indication: CONTRACEPTION
     Route: 065
     Dates: start: 2011

REACTIONS (5)
  - Device breakage [Not Recovered/Not Resolved]
  - Muscle spasms [Unknown]
  - Feeling abnormal [Unknown]
  - Embedded device [Unknown]
  - Medical device complication [Not Recovered/Not Resolved]
